FAERS Safety Report 4987258-5 (Version None)
Quarter: 2006Q2

REPORT INFORMATION
  Report Type: 
  Country: None (occurrence: None)
  Receive Date: 20060501
  Receipt Date: 20050113
  Transmission Date: 20061013
  Serious: Yes (Hospitalization, Other)
  Sender: FDA-Public Use
  Company Number: US-MERCK-0501USA02387

PATIENT
  Age: 63 Year
  Sex: Female
  Weight: 68 kg

DRUGS (2)
  1. VIOXX [Suspect]
     Indication: OSTEOARTHRITIS
     Route: 048
     Dates: start: 19990101, end: 20030101
  2. SYNTHROID [Concomitant]
     Route: 065

REACTIONS (29)
  - ANXIETY [None]
  - BLINDNESS UNILATERAL [None]
  - BREAST DISCOMFORT [None]
  - CAROTID ARTERY DISEASE [None]
  - CAROTID ARTERY STENOSIS [None]
  - CEREBROVASCULAR ACCIDENT [None]
  - CHEST PAIN [None]
  - CORONARY ARTERY STENOSIS [None]
  - DEPRESSION [None]
  - DILATATION ATRIAL [None]
  - DIPLOPIA [None]
  - DIZZINESS [None]
  - ESCHAR [None]
  - EXCORIATION [None]
  - FALL [None]
  - HEADACHE [None]
  - HYPOAESTHESIA [None]
  - INSOMNIA [None]
  - MITRAL VALVE INCOMPETENCE [None]
  - PNEUMONIA [None]
  - RETINAL ARTERY EMBOLISM [None]
  - ROTATOR CUFF SYNDROME [None]
  - SHOULDER PAIN [None]
  - SINUSITIS [None]
  - SLEEP APNOEA SYNDROME [None]
  - TRANSIENT ISCHAEMIC ATTACK [None]
  - URINARY TRACT INFECTION [None]
  - VISUAL DISTURBANCE [None]
  - VOMITING [None]
